FAERS Safety Report 4614979-6 (Version None)
Quarter: 2005Q1

REPORT INFORMATION
  Report Type: 
  Country: None (occurrence: None)
  Receive Date: 20050318
  Receipt Date: 20050318
  Transmission Date: 20050727
  Serious: Yes (Other)
  Sender: FDA-Public Use
  Company Number: None

PATIENT
  Age: 14 Year
  Sex: Female
  Weight: 63.9572 kg

DRUGS (1)
  1. GEODON [Suspect]
     Indication: BIPOLAR DISORDER
     Dosage: 120 MG PO BID
     Route: 048
     Dates: start: 20050126, end: 20050302

REACTIONS (1)
  - OCULOGYRATION [None]
